FAERS Safety Report 8792467 (Version 1)
Quarter: 2012Q4

REPORT INFORMATION
  Report Type: 
  Country: US (occurrence: US)
  Receive Date: 20120918
  Receipt Date: 20120918
  Transmission Date: 20130627
  Serious: No
  Sender: FDA-Public Use
  Company Number: US-BAYER-2012-096555

PATIENT
  Sex: Female

DRUGS (1)
  1. MIRENA [Suspect]
     Dosage: t20 mcg/24hr, CONT
     Route: 015
     Dates: start: 201201

REACTIONS (5)
  - Menstruation delayed [None]
  - Abdominal distension [None]
  - Abdominal pain [None]
  - Back pain [None]
  - Acne [None]
